FAERS Safety Report 22396600 (Version 1)
Quarter: 2023Q2

REPORT INFORMATION
  Report Type: Spontaneous
  Country: US (occurrence: US)
  Receive Date: 20230601
  Receipt Date: 20230601
  Transmission Date: 20230721
  Serious: No
  Sender: FDA-Public Use
  Company Number: US-Teikoku Pharma USA-TPU2023-00299

PATIENT
  Age: 58 Year
  Sex: Female

DRUGS (1)
  1. LIDOCAINE PATCH [Suspect]
     Active Substance: LIDOCAINE
     Indication: Cervical spinal stenosis
     Route: 061

REACTIONS (3)
  - Product prescribing error [Unknown]
  - Anger [Unknown]
  - Pain [Unknown]

NARRATIVE: CASE EVENT DATE: 20230125
